FAERS Safety Report 13617934 (Version 2)
Quarter: 2017Q3

REPORT INFORMATION
  Report Type: Spontaneous
  Country: SE (occurrence: SE)
  Receive Date: 20170606
  Receipt Date: 20170825
  Transmission Date: 20171127
  Serious: Yes (Life-Threatening, Hospitalization)
  Sender: FDA-Public Use
  Company Number: SE-AMGEN-SWESP2017083756

PATIENT
  Age: 69 Year
  Sex: Male
  Weight: 54 kg

DRUGS (11)
  1. MYFORTIC [Concomitant]
     Active Substance: MYCOPHENOLATE SODIUM
     Dosage: UNK
     Dates: start: 20150709, end: 20151013
  2. BEHEPAN [Concomitant]
     Active Substance: HYDROXOCOBALAMIN
     Dosage: UNK
  3. FURIX [Concomitant]
     Active Substance: FUROSEMIDE
  4. PROLIA [Suspect]
     Active Substance: DENOSUMAB
     Indication: BONE DISORDER
     Dosage: UNK
     Route: 065
     Dates: start: 20120404
  5. TACROLIMUS. [Concomitant]
     Active Substance: TACROLIMUS
  6. EPOETIN ZETA [Concomitant]
     Active Substance: ERYTHROPOIETIN
  7. ADPORT [Concomitant]
     Active Substance: TACROLIMUS
     Dosage: UNK
     Dates: start: 20150709
  8. FOLACIN [Concomitant]
     Active Substance: FOLIC ACID
  9. PREDNISOLON [Concomitant]
     Active Substance: PREDNISOLONE
     Dosage: UNK
     Dates: start: 20160822
  10. CEFADROXIL. [Concomitant]
     Active Substance: CEFADROXIL
  11. KORTISON [Concomitant]
     Active Substance: CORTISONE ACETATE

REACTIONS (6)
  - Blood creatinine increased [Recovered/Resolved]
  - Hypocalcaemia [Recovered/Resolved]
  - Off label use [Unknown]
  - Syncope [Unknown]
  - Anaemia [Recovered/Resolved]
  - Muscle twitching [Unknown]

NARRATIVE: CASE EVENT DATE: 20160822
